FAERS Safety Report 24278306 (Version 1)
Quarter: 2024Q3

REPORT INFORMATION
  Report Type: Spontaneous
  Country: CA (occurrence: None)
  Receive Date: 20240903
  Receipt Date: 20240903
  Transmission Date: 20241017
  Serious: Yes (Other)
  Sender: ASTRAZENECA
  Company Number: 2024A199061

PATIENT
  Age: 34 Year
  Sex: Female

DRUGS (25)
  1. BUDESONIDE\FORMOTEROL FUMARATE [Suspect]
     Active Substance: BUDESONIDE\FORMOTEROL FUMARATE
     Indication: Product used for unknown indication
     Dosage: UNKNOWN UNKNOWN
     Route: 055
  2. ACYCLOVIR [Suspect]
     Active Substance: ACYCLOVIR
     Indication: Herpes zoster
     Route: 048
  3. ALBUTEROL SULFATE [Suspect]
     Active Substance: ALBUTEROL SULFATE
     Indication: Product used for unknown indication
     Route: 055
  4. AMOXICILLIN AND CLAVULANATE POTASSIUM [Suspect]
     Active Substance: AMOXICILLIN\CLAVULANATE POTASSIUM
     Indication: Sputum discoloured
  5. AMOXICILLIN AND CLAVULANATE POTASSIUM [Suspect]
     Active Substance: AMOXICILLIN\CLAVULANATE POTASSIUM
     Indication: Cough
  6. CODEINE [Suspect]
     Active Substance: CODEINE
     Indication: Respiratory distress
  7. MACROBID [Suspect]
     Active Substance: NITROFURANTOIN\NITROFURANTOIN MONOHYDRATE
     Indication: Product used for unknown indication
  8. MONTELUKAST SODIUM [Suspect]
     Active Substance: MONTELUKAST\MONTELUKAST SODIUM
     Indication: Product used for unknown indication
     Route: 048
  9. OMALIZUMAB [Suspect]
     Active Substance: OMALIZUMAB
     Indication: Asthma
  10. OMALIZUMAB [Suspect]
     Active Substance: OMALIZUMAB
     Indication: Asthma
  11. OMALIZUMAB [Suspect]
     Active Substance: OMALIZUMAB
     Indication: Asthma
  12. PREDNISONE [Suspect]
     Active Substance: PREDNISONE
     Indication: Sputum discoloured
  13. PREDNISONE [Suspect]
     Active Substance: PREDNISONE
     Indication: Respiratory distress
  14. PREDNISONE [Suspect]
     Active Substance: PREDNISONE
     Indication: Herpes zoster
  15. PREDNISONE [Suspect]
     Active Substance: PREDNISONE
     Indication: Cough
  16. PREDNISONE [Suspect]
     Active Substance: PREDNISONE
     Indication: Sputum discoloured
     Route: 048
  17. PREDNISONE [Suspect]
     Active Substance: PREDNISONE
     Indication: Respiratory distress
     Route: 048
  18. PREDNISONE [Suspect]
     Active Substance: PREDNISONE
     Indication: Herpes zoster
     Route: 048
  19. PREDNISONE [Suspect]
     Active Substance: PREDNISONE
     Indication: Cough
     Route: 048
  20. PREDNISONE [Suspect]
     Active Substance: PREDNISONE
     Indication: Sputum discoloured
  21. PREDNISONE [Suspect]
     Active Substance: PREDNISONE
     Indication: Respiratory distress
  22. PREDNISONE [Suspect]
     Active Substance: PREDNISONE
     Indication: Herpes zoster
  23. PREDNISONE [Suspect]
     Active Substance: PREDNISONE
     Indication: Cough
  24. PREGABALIN [Suspect]
     Active Substance: PREGABALIN
     Indication: Herpes zoster
  25. VALACYCLOVIR HYDROCHLORIDE [Suspect]
     Active Substance: VALACYCLOVIR HYDROCHLORIDE
     Indication: Herpes zoster

REACTIONS (8)
  - Cough [Recovering/Resolving]
  - Headache [Recovering/Resolving]
  - Herpes zoster [Recovering/Resolving]
  - Pneumonitis [Recovering/Resolving]
  - Respiratory distress [Recovering/Resolving]
  - Sputum discoloured [Recovering/Resolving]
  - Urinary tract infection [Recovering/Resolving]
  - Drug ineffective [Recovering/Resolving]
